FAERS Safety Report 8941230 (Version 2)
Quarter: 2013Q1

REPORT INFORMATION
  Report Type: Spontaneous
  Country: US (occurrence: US)
  Receive Date: 20121203
  Receipt Date: 20130204
  Transmission Date: 20140127
  Serious: Yes (Other)
  Sender: FDA-Public Use
  Company Number: US-ELI_LILLY_AND_COMPANY-US201211006431

PATIENT
  Age: 62 Year
  Sex: Female
  Weight: 62.59 kg

DRUGS (6)
  1. CYMBALTA [Suspect]
     Indication: DEPRESSION
     Dosage: 60 MG, QD
     Route: 048
     Dates: start: 20090204, end: 2012
  2. HYDROCODONE [Concomitant]
     Dosage: UNK, UNKNOWN
  3. SYMBICORT [Concomitant]
     Dosage: UNK, UNKNOWN
  4. TRAMADOL [Concomitant]
     Dosage: UNK, UNKNOWN
  5. ESTRADIOL [Concomitant]
     Dosage: UNK, UNKNOWN
  6. DIAZEPAM [Concomitant]
     Dosage: UNK, UNKNOWN

REACTIONS (7)
  - Suicidal ideation [Recovered/Resolved]
  - Drug withdrawal syndrome [Recovering/Resolving]
  - Thinking abnormal [Recovering/Resolving]
  - Insomnia [Not Recovered/Not Resolved]
  - Weight decreased [Recovering/Resolving]
  - Emotional disorder [Recovering/Resolving]
  - Crying [Recovering/Resolving]
